FAERS Safety Report 25544606 (Version 1)
Quarter: 2025Q3

REPORT INFORMATION
  Report Type: Spontaneous
  Country: EU (occurrence: EU)
  Receive Date: 20250711
  Receipt Date: 20250711
  Transmission Date: 20251021
  Serious: Yes (Life-Threatening, Hospitalization)
  Sender: MYLAN
  Company Number: None

PATIENT
  Age: 21 Year
  Sex: Female
  Weight: 50 kg

DRUGS (2)
  1. XANAX [Suspect]
     Active Substance: ALPRAZOLAM
     Indication: Product used for unknown indication
     Dates: start: 20250403, end: 20250403
  2. TRETINOIN [Suspect]
     Active Substance: TRETINOIN
     Indication: Depression
     Dates: start: 20250403, end: 20250403

REACTIONS (3)
  - Crying [Recovering/Resolving]
  - Agitation [Recovering/Resolving]
  - Hallucination [Recovering/Resolving]

NARRATIVE: CASE EVENT DATE: 20250403
